FAERS Safety Report 8300615-4 (Version None)
Quarter: 2012Q2

REPORT INFORMATION
  Report Type: 
  Country: None (occurrence: None)
  Receive Date: 20120420
  Receipt Date: 20120410
  Transmission Date: 20120825
  Serious: Yes (Hospitalization)
  Sender: FDA-Public Use
  Company Number: PHHY2012KR007152

PATIENT
  Sex: Male
  Weight: 83 kg

DRUGS (1)
  1. EXJADE [Suspect]
     Indication: APLASTIC ANAEMIA
     Dosage: 2000 MG, UNK
     Route: 048
     Dates: start: 20080718

REACTIONS (2)
  - CYST [None]
  - WOUND [None]
